FAERS Safety Report 4559741-8 (Version None)
Quarter: 2005Q1

REPORT INFORMATION
  Report Type: 
  Country: None (occurrence: None)
  Receive Date: 20050114
  Receipt Date: 20031230
  Transmission Date: 20050727
  Serious: Yes (Other)
  Sender: FDA-Public Use
  Company Number: 20031005945

PATIENT
  Age: 30 Year
  Sex: Female
  Weight: 57.6068 kg

DRUGS (2)
  1. INTRAUTERINE COPPER CONTRACEPTIVE [Suspect]
     Indication: CONTRACEPTION
     Dosage: INTRA-UTERINE
     Route: 015
     Dates: start: 20030220, end: 20031106
  2. ACYCLOVIR (ACICLOVIR) (PILL) [Concomitant]

REACTIONS (3)
  - ENDOMETRIOSIS [None]
  - IUCD COMPLICATION [None]
  - PELVIC PAIN [None]
